FAERS Safety Report 16652014 (Version 1)
Quarter: 2019Q3

REPORT INFORMATION
  Report Type: Spontaneous
  Country: US (occurrence: US)
  Receive Date: 20190617
  Receipt Date: 20190617
  Transmission Date: 20191004
  Serious: No
  Sender: FDA-Public Use
  Company Number: None

PATIENT
  Age: 63 Year
  Sex: Male

DRUGS (1)
  1. AFINITOR [Suspect]
     Active Substance: EVEROLIMUS
     Route: 048
     Dates: start: 20181103

REACTIONS (3)
  - Road traffic accident [None]
  - Pneumothorax [None]
  - Pulmonary oedema [None]

NARRATIVE: CASE EVENT DATE: 20190617
